FAERS Safety Report 8953840 (Version 3)
Quarter: 2013Q4

REPORT INFORMATION
  Report Type: Spontaneous
  Country: US (occurrence: US)
  Receive Date: 20121206
  Receipt Date: 20131101
  Transmission Date: 20140711
  Serious: Yes (Hospitalization)
  Sender: FDA-Public Use
  Company Number: US-VERTEX PHARMACEUTICALS INC.-2012-025661

PATIENT
  Age: 57 Year
  Sex: Female
  Weight: 79 kg

DRUGS (5)
  1. INCIVEK [Suspect]
     Indication: HEPATITIS C
     Dosage: 750 MG, TID
     Route: 048
     Dates: start: 20120907, end: 20121130
  2. PEGINTRON [Suspect]
     Indication: HEPATITIS C
     Dosage: 120 ?G, QW
     Route: 058
     Dates: start: 20120907
  3. RIBAVIRIN [Suspect]
     Indication: HEPATITIS C
     Dosage: 400MG AM, 600MG PM
     Route: 048
     Dates: start: 20120907
  4. RIBAVIRIN [Suspect]
     Dosage: 200MG AM, 400MG PM
     Route: 048
     Dates: start: 201211
  5. RIBAVIRIN [Suspect]
     Dosage: 200 MG, QD
     Route: 048
     Dates: start: 201205

REACTIONS (5)
  - Anaemia [Recovered/Resolved]
  - Formication [Not Recovered/Not Resolved]
  - Disturbance in attention [Not Recovered/Not Resolved]
  - Pruritus [Not Recovered/Not Resolved]
  - Drug ineffective [Not Recovered/Not Resolved]
